FAERS Safety Report 9147226 (Version 2)
Quarter: 2013Q2

REPORT INFORMATION
  Report Type: Spontaneous
  Country: US (occurrence: US)
  Receive Date: 20130307
  Receipt Date: 20130408
  Transmission Date: 20140414
  Serious: Yes (Hospitalization)
  Sender: FDA-Public Use
  Company Number: US-GLAXOSMITHKLINE-A1014031A

PATIENT
  Age: 75 Year
  Sex: Female

DRUGS (14)
  1. BENLYSTA [Suspect]
     Indication: SYSTEMIC LUPUS ERYTHEMATOSUS
     Route: 042
     Dates: start: 201206, end: 201208
  2. PLAQUENIL [Concomitant]
  3. METOPROLOL [Concomitant]
  4. ACIPHEX [Concomitant]
  5. PLAVIX [Concomitant]
  6. PREDNISONE [Concomitant]
  7. FOLIC ACID [Concomitant]
  8. METHOTREXATE [Concomitant]
  9. ALBUTEROL INHALER [Concomitant]
  10. MULTIVITAMIN [Concomitant]
  11. NEURONTIN [Concomitant]
  12. VOLTAREN [Concomitant]
  13. FLEXERIL [Concomitant]
  14. MIRAPEX [Concomitant]

REACTIONS (9)
  - Cellulitis [Recovering/Resolving]
  - Ulcer [Recovered/Resolved]
  - Dry mouth [Recovering/Resolving]
  - Pain [Recovering/Resolving]
  - Nausea [Not Recovered/Not Resolved]
  - Vomiting [Unknown]
  - Malaise [Unknown]
  - Impaired healing [Recovering/Resolving]
  - Flatulence [Unknown]
